FAERS Safety Report 21322367 (Version 1)
Quarter: 2022Q3

REPORT INFORMATION
  Report Type: Spontaneous
  Country: US (occurrence: US)
  Receive Date: 20220912
  Receipt Date: 20220912
  Transmission Date: 20221026
  Serious: No
  Sender: FDA-Public Use
  Company Number: US-AMNEAL PHARMACEUTICALS-2022-AMRX-00778

PATIENT
  Sex: Female

DRUGS (7)
  1. GABAPENTIN [Suspect]
     Active Substance: GABAPENTIN
     Indication: Post herpetic neuralgia
     Dosage: UNK
     Route: 065
  2. LENVIMA [Concomitant]
     Active Substance: LENVATINIB
     Indication: Endometrial cancer
     Dosage: 14 MILLIGRAM, DAILY
     Route: 048
     Dates: start: 20210908, end: 202110
  3. LENVIMA [Concomitant]
     Active Substance: LENVATINIB
     Dosage: 18 MILLIGRAM, DAILY
     Route: 048
     Dates: start: 20211022, end: 202111
  4. LENVIMA [Concomitant]
     Active Substance: LENVATINIB
     Dosage: 14 MILLIGRAM, DAILY
     Route: 048
     Dates: start: 20211109
  5. LISINOPRIL [Concomitant]
     Active Substance: LISINOPRIL
     Indication: Blood pressure increased
     Dosage: UNK
     Route: 065
  6. AMLODIPINE [Concomitant]
     Active Substance: AMLODIPINE BESYLATE
     Indication: Blood pressure increased
     Dosage: UNK
     Route: 065
  7. DULOXETINE [Concomitant]
     Active Substance: DULOXETINE
     Indication: Product used for unknown indication
     Dosage: UNK
     Route: 065

REACTIONS (2)
  - Fatigue [Unknown]
  - Nausea [Unknown]
